FAERS Safety Report 16739195 (Version 1)
Quarter: 2019Q3

REPORT INFORMATION
  Report Type: Spontaneous
  Country: US (occurrence: US)
  Receive Date: 20190826
  Receipt Date: 20190826
  Transmission Date: 20191005
  Serious: No
  Sender: FDA-Public Use
  Company Number: US-OREXO US, INC.-ORE201905-000053

PATIENT
  Sex: Female

DRUGS (3)
  1. ZUBSOLV [Suspect]
     Active Substance: BUPRENORPHINE HYDROCHLORIDE\NALOXONE HYDROCHLORIDE
     Indication: PAIN
     Dosage: 11.4 MG/ 2.9 MG, HALF TABLET
     Dates: start: 201903
  2. ZUBSOLV [Suspect]
     Active Substance: BUPRENORPHINE HYDROCHLORIDE\NALOXONE HYDROCHLORIDE
     Indication: DRUG DEPENDENCE
     Dosage: 5.7 MG/ 1.4 MG, HALF TABLET
     Route: 048
     Dates: start: 201901
  3. BELBUCA [Concomitant]
     Active Substance: BUPRENORPHINE HYDROCHLORIDE

REACTIONS (3)
  - Dizziness [Not Recovered/Not Resolved]
  - Wrong technique in product usage process [Unknown]
  - Malaise [Not Recovered/Not Resolved]
